FAERS Safety Report 16715718 (Version 3)
Quarter: 2019Q3

REPORT INFORMATION
  Report Type: Spontaneous
  Country: US (occurrence: US)
  Receive Date: 20190819
  Receipt Date: 20190923
  Transmission Date: 20191005
  Serious: No
  Sender: FDA-Public Use
  Company Number: US-PFIZER INC-2019352837

PATIENT
  Age: 40 Year
  Sex: Female

DRUGS (1)
  1. GABAPENTIN. [Suspect]
     Active Substance: GABAPENTIN
     Indication: BACK PAIN
     Dosage: 300 MG, TWO TIMES A DAY
     Route: 048
     Dates: start: 20180502, end: 20180525

REACTIONS (5)
  - Product use in unapproved indication [Unknown]
  - Diarrhoea [Recovered/Resolved]
  - Off label use [Unknown]
  - Drug intolerance [Unknown]
  - Drug hypersensitivity [Unknown]

NARRATIVE: CASE EVENT DATE: 20180502
